FAERS Safety Report 24299546 (Version 1)
Quarter: 2024Q3

REPORT INFORMATION
  Report Type: Spontaneous
  Country: PL (occurrence: PL)
  Receive Date: 20240909
  Receipt Date: 20240909
  Transmission Date: 20241017
  Serious: Yes (Hospitalization, Other)
  Sender: RANBAXY
  Company Number: PL-SUN PHARMACEUTICAL INDUSTRIES LTD-2024R1-466556

PATIENT
  Age: 36 Year
  Sex: Female

DRUGS (3)
  1. AMOXICILLIN [Suspect]
     Active Substance: AMOXICILLIN
     Indication: Preterm premature rupture of membranes
     Dosage: UNK
     Route: 065
  2. AZITHROMYCIN [Suspect]
     Active Substance: AZITHROMYCIN
     Indication: Preterm premature rupture of membranes
     Dosage: UNK
     Route: 065
  3. CEFTRIAXONE [Suspect]
     Active Substance: CEFTRIAXONE\CEFTRIAXONE SODIUM
     Indication: Preterm premature rupture of membranes
     Dosage: UNK
     Route: 065

REACTIONS (7)
  - Polyhydramnios [Unknown]
  - Exposure during pregnancy [Unknown]
  - Premature delivery [Unknown]
  - Diaphragmatic hernia [Unknown]
  - Atrioventricular septal defect [Unknown]
  - Talipes [Unknown]
  - Scoliosis [Unknown]
